FAERS Safety Report 25647986 (Version 1)
Quarter: 2025Q3

REPORT INFORMATION
  Report Type: Report from Study
  Country: US (occurrence: US)
  Receive Date: 20250806
  Receipt Date: 20250806
  Transmission Date: 20251021
  Serious: No
  Sender: SUNOVION
  Company Number: US-SUMITOMO PHARMA SWITZERLAND GMBH-2025SPA009830

PATIENT
  Age: 47 Year
  Sex: Male

DRUGS (9)
  1. ORGOVYX [Suspect]
     Active Substance: RELUGOLIX
     Indication: Prostate cancer
     Route: 048
  2. ORGOVYX [Suspect]
     Active Substance: RELUGOLIX
     Route: 048
  3. Chaga mustikad [Concomitant]
  4. HERBALS [Concomitant]
     Active Substance: HERBALS
  5. Turmeric complex [Concomitant]
  6. REISHI [Concomitant]
     Active Substance: REISHI
  7. TADALAFIL [Concomitant]
     Active Substance: TADALAFIL
  8. Turkey tail mushroom [Concomitant]
  9. XTANDI [Concomitant]
     Active Substance: ENZALUTAMIDE

REACTIONS (4)
  - Brain fog [Unknown]
  - Muscle atrophy [Unknown]
  - Hot flush [Unknown]
  - Product dose omission issue [Recovered/Resolved]
